FAERS Safety Report 13980260 (Version 1)
Quarter: 2017Q3

REPORT INFORMATION
  Report Type: Spontaneous
  Country: US (occurrence: US)
  Receive Date: 20170917
  Receipt Date: 20170917
  Transmission Date: 20171128
  Serious: No
  Sender: FDA-Public Use
  Company Number: US-AMGEN-USASP2017138745

PATIENT
  Sex: Female

DRUGS (3)
  1. ENBREL [Suspect]
     Active Substance: ETANERCEPT
     Indication: PSORIASIS
     Dosage: 50 MG, 2 TIMES/WK
     Route: 065
     Dates: start: 201708
  2. ENBREL [Suspect]
     Active Substance: ETANERCEPT
     Indication: PUSTULAR PSORIASIS
  3. OTEZLA [Concomitant]
     Active Substance: APREMILAST
     Dosage: UNK
     Route: 065
     Dates: start: 2017, end: 201709

REACTIONS (5)
  - Injection site induration [Recovered/Resolved]
  - Injection site erythema [Recovered/Resolved]
  - Gait disturbance [Unknown]
  - Pain in extremity [Recovering/Resolving]
  - Rash pustular [Unknown]

NARRATIVE: CASE EVENT DATE: 2017
